FAERS Safety Report 16982036 (Version 1)
Quarter: 2019Q4

REPORT INFORMATION
  Report Type: Spontaneous
  Country: TN (occurrence: TN)
  Receive Date: 20191101
  Receipt Date: 20191101
  Transmission Date: 20200122
  Serious: Yes (Other)
  Sender: FDA-Public Use
  Company Number: TN-ALKEM LABORATORIES LIMITED-TN-ALKEM-2019-09037

PATIENT
  Sex: Female

DRUGS (1)
  1. LIDOCAINE. [Suspect]
     Active Substance: LIDOCAINE
     Indication: PRODUCT USED FOR UNKNOWN INDICATION
     Dosage: UNK
     Route: 065

REACTIONS (4)
  - Toxicity to various agents [Unknown]
  - Seizure [Unknown]
  - Neurotoxicity [Unknown]
  - Generalised tonic-clonic seizure [Unknown]
